FAERS Safety Report 16750185 (Version 1)
Quarter: 2019Q3

REPORT INFORMATION
  Report Type: Spontaneous
  Country: DK (occurrence: DK)
  Receive Date: 20190828
  Receipt Date: 20190828
  Transmission Date: 20191005
  Serious: Yes (Other)
  Sender: FDA-Public Use
  Company Number: DK-BRISTOL-MYERS SQUIBB COMPANY-BMS-2019-082120

PATIENT
  Age: 35 Year
  Sex: Female

DRUGS (2)
  1. KENALOG [Suspect]
     Active Substance: TRIAMCINOLONE ACETONIDE
     Indication: PAIN
     Dosage: DOSIS UKENDT. STYRKE 40 MG/ML
     Route: 065
     Dates: start: 20170510, end: 20170807
  2. DIPROFOS DEPOT [Suspect]
     Active Substance: BETAMETHASONE DIPROPIONATE\BETAMETHASONE SODIUM PHOSPHATE
     Indication: PAIN
     Dosage: DOSIS UKENDT. STYRKE: 7 MG/ML
     Route: 065
     Dates: start: 20170227, end: 20170227

REACTIONS (7)
  - Hirsutism [Recovering/Resolving]
  - Metrorrhagia [Unknown]
  - Subcutaneous abscess [Unknown]
  - Menstruation irregular [Not Recovered/Not Resolved]
  - Acne [Not Recovered/Not Resolved]
  - Pigmentation disorder [Unknown]
  - Insulin-like growth factor increased [Unknown]

NARRATIVE: CASE EVENT DATE: 2017
